FAERS Safety Report 18877224 (Version 1)
Quarter: 2021Q1

REPORT INFORMATION
  Report Type: Spontaneous
  Country: US (occurrence: US)
  Receive Date: 20210211
  Receipt Date: 20210211
  Transmission Date: 20210420
  Serious: Yes (Other)
  Sender: FDA-Public Use
  Company Number: US-SA-2021SA038246

PATIENT
  Age: 40 Year
  Sex: Male

DRUGS (1)
  1. ZANTAC [Suspect]
     Active Substance: RANITIDINE HYDROCHLORIDE
     Indication: DYSPEPSIA
     Dosage: UNK, QD
     Dates: start: 200101, end: 201401

REACTIONS (7)
  - Gastrointestinal carcinoma [Unknown]
  - Renal cancer stage IV [Unknown]
  - Brain neoplasm [Unknown]
  - Thyroid cancer [Unknown]
  - Lung carcinoma cell type unspecified stage IV [Unknown]
  - Haematological malignancy [Unknown]
  - Hepatic cancer [Unknown]

NARRATIVE: CASE EVENT DATE: 20040101
